FAERS Safety Report 8011406-6 (Version None)
Quarter: 2011Q4

REPORT INFORMATION
  Report Type: 
  Country: None (occurrence: None)
  Receive Date: 20111222
  Receipt Date: 20111214
  Transmission Date: 20120403
  Serious: Yes (Hospitalization)
  Sender: FDA-Public Use
  Company Number: 2009003070

PATIENT
  Age: 60 Year
  Sex: Male
  Weight: 68 kg

DRUGS (10)
  1. ERLOTINIB HYDROCHLORIDE [Suspect]
     Indication: NON-SMALL CELL LUNG CANCER
     Dosage: 150 MG, UID/QD, ORAL
     Route: 048
     Dates: start: 20090824, end: 20091029
  2. ONDANSETRON [Concomitant]
  3. LORAZEPAM [Concomitant]
  4. CP-751,871 (CP-751,871) [Suspect]
     Indication: NON-SMALL CELL LUNG CANCER
     Dosage: 1360 MG, Q3W, IV NOS
     Route: 042
     Dates: start: 20090825, end: 20091021
  5. PACLITAXEL [Suspect]
     Indication: NON-SMALL CELL LUNG CANCER
     Dosage: 360 MG, Q3W, IV NOS
     Route: 042
     Dates: start: 20090824, end: 20090914
  6. CARBOPLATIN [Suspect]
     Indication: NON-SMALL CELL LUNG CANCER
     Dosage: 714 MG, Q3W, IV NOS
     Route: 042
     Dates: start: 20090824, end: 20090914
  7. DEXAMETHASONE [Concomitant]
  8. OMEPRAZOLE [Concomitant]
  9. PRIMPERAN TAB [Concomitant]
  10. ACETAMINOPHEN [Concomitant]

REACTIONS (14)
  - THROMBOCYTOPENIA [None]
  - NAUSEA [None]
  - RENAL FAILURE [None]
  - FEBRILE NEUTROPENIA [None]
  - HYPOKALAEMIA [None]
  - SEPSIS [None]
  - VOMITING [None]
  - HYPOCALCAEMIA [None]
  - DIARRHOEA [None]
  - GAMMA-GLUTAMYLTRANSFERASE INCREASED [None]
  - HAEMATOTOXICITY [None]
  - MUCOSAL INFLAMMATION [None]
  - EPISTAXIS [None]
  - RESPIRATORY DISORDER [None]
